APPROVED DRUG PRODUCT: ELIGARD KIT
Active Ingredient: LEUPROLIDE ACETATE
Strength: 22.5MG
Dosage Form/Route: POWDER;SUBCUTANEOUS
Application: N021379 | Product #001
Applicant: TOLMAR INC
Approved: Jul 24, 2002 | RLD: Yes | RS: Yes | Type: RX

PATENTS:
Patent 12397120 | Expires: Dec 22, 2041
Patent 11931559 | Expires: Dec 22, 2041
Patent 11771841 | Expires: Dec 22, 2041